FAERS Safety Report 12404541 (Version 1)
Quarter: 2016Q2

REPORT INFORMATION
  Report Type: Spontaneous
  Country: US (occurrence: US)
  Receive Date: 20160525
  Receipt Date: 20160525
  Transmission Date: 20160815
  Serious: Yes (Death)
  Sender: FDA-Public Use
  Company Number: PHEH2016US012911

PATIENT
  Sex: Female
  Weight: 86.26 kg

DRUGS (1)
  1. TYKERB [Suspect]
     Active Substance: LAPATINIB DITOSYLATE
     Indication: URETHRAL CANCER
     Dosage: 500 MG, QD
     Route: 048
     Dates: start: 20150304

REACTIONS (2)
  - Urethral cancer [Fatal]
  - Product use issue [Unknown]
